FAERS Safety Report 4889959-6 (Version None)
Quarter: 2006Q1

REPORT INFORMATION
  Report Type: 
  Country: None (occurrence: None)
  Receive Date: 20060124
  Receipt Date: 20060116
  Transmission Date: 20060701
  Serious: Yes (Other)
  Sender: FDA-Public Use
  Company Number: US-JNJFOC-20051000605

PATIENT
  Sex: Female
  Weight: 76.66 kg

DRUGS (6)
  1. REMICADE [Suspect]
     Indication: CROHN'S DISEASE
     Dosage: WAS ON INFLIXIMAB THERAPY FOR OVER ONE YEAR.
     Route: 042
  2. ZOCOR [Concomitant]
  3. PREMARIN [Concomitant]
  4. METFORMIN HCL [Concomitant]
  5. NEXIUM [Concomitant]
  6. OXYCONTIN [Concomitant]

REACTIONS (1)
  - SYSTEMIC LUPUS ERYTHEMATOSUS [None]
